FAERS Safety Report 12171249 (Version 2)
Quarter: 2017Q3

REPORT INFORMATION
  Report Type: Spontaneous
  Country: US (occurrence: US)
  Receive Date: 20160311
  Receipt Date: 20170915
  Transmission Date: 20171127
  Serious: Yes (Other)
  Sender: FDA-Public Use
  Company Number: US-SUN PHARMACEUTICAL INDUSTRIES LTD-2016US-112828

PATIENT
  Age: 59 Year
  Sex: Female

DRUGS (18)
  1. TACROLIMUS. [Concomitant]
     Active Substance: TACROLIMUS
     Indication: IMMUNOSUPPRESSION
  2. ERGOCALCIFEROL. [Concomitant]
     Active Substance: ERGOCALCIFEROL
  3. PREDNISOLONE. [Suspect]
     Active Substance: PREDNISOLONE
     Indication: PRODUCT USED FOR UNKNOWN INDICATION
     Dosage: 2 MG/KG, BID
     Route: 042
  4. ESOMEPRAZOLE [Concomitant]
     Active Substance: ESOMEPRAZOLE
  5. INFLIXIMAB [Concomitant]
     Active Substance: INFLIXIMAB
     Indication: CHEMOTHERAPY
  6. POSACONAZOLE [Concomitant]
     Active Substance: POSACONAZOLE
     Indication: ANTIFUNGAL TREATMENT
  7. PREDNISONE. [Suspect]
     Active Substance: PREDNISONE
     Indication: PRODUCT USED FOR UNKNOWN INDICATION
     Dosage: 7.5 MG, QOD
     Route: 065
  8. MAGNESIUM SUPPLEMENT [Concomitant]
  9. LEVOTHYROXINE. [Concomitant]
     Active Substance: LEVOTHYROXINE
  10. OMEGA-3 FATTY ACIDS [Concomitant]
     Active Substance: OMEGA-3 FATTY ACIDS
  11. ACYCLOVIR. [Concomitant]
     Active Substance: ACYCLOVIR
  12. CALCIUM CITRATE SUPPLEMENT [Concomitant]
  13. CYCLOSPORINE. [Concomitant]
     Active Substance: CYCLOSPORINE
  14. FLUOXETINE [Concomitant]
     Active Substance: FLUOXETINE HYDROCHLORIDE
  15. RITUXIMAB. [Concomitant]
     Active Substance: RITUXIMAB
     Indication: CHEMOTHERAPY
  16. METHYLPREDNISOLONE. [Suspect]
     Active Substance: METHYLPREDNISOLONE
     Indication: PRODUCT USED FOR UNKNOWN INDICATION
     Route: 065
  17. BUDESONIDE. [Concomitant]
     Active Substance: BUDESONIDE
     Indication: IMMUNOSUPPRESSION
     Dosage: 3 MG, BID
  18. VORICONAZOLE. [Concomitant]
     Active Substance: VORICONAZOLE
     Indication: ANTIFUNGAL TREATMENT

REACTIONS (2)
  - Arthropathy [Recovering/Resolving]
  - Myopathy [Recovering/Resolving]
